FAERS Safety Report 9219699 (Version 1)
Quarter: 2013Q2

REPORT INFORMATION
  Report Type: Spontaneous
  Country: US (occurrence: None)
  Receive Date: 20130405
  Receipt Date: 20130405
  Transmission Date: 20140414
  Serious: Yes (Hospitalization)
  Sender: FDA-Public Use
  Company Number: SYM-2013-02236

PATIENT
  Age: 82 Year
  Sex: Male

DRUGS (3)
  1. DILTIAZEM (DILTIAZEM) (DILTIAZEM) [Suspect]
     Indication: PRODUCT USED FOR UNKNOWN INDICATION
  2. SUNITINIB [Suspect]
     Indication: RENAL CELL CARCINOMA
  3. COLCHICINE [Suspect]
     Indication: GOUT

REACTIONS (16)
  - Cardiac failure [None]
  - Diarrhoea [None]
  - Metabolic acidosis [None]
  - Pneumonia [None]
  - Leukopenia [None]
  - Anaemia [None]
  - Spur cell anaemia [None]
  - Cardiovascular disorder [None]
  - Hypotension [None]
  - Hypokalaemia [None]
  - Hypomagnesaemia [None]
  - Thrombocytopenia [None]
  - Overdose [None]
  - Drug interaction [None]
  - Pleuritic pain [None]
  - Cardiac failure acute [None]
